FAERS Safety Report 8182409-6 (Version None)
Quarter: 2012Q1

REPORT INFORMATION
  Report Type: 
  Country: None (occurrence: None)
  Receive Date: 20120304
  Receipt Date: 20120229
  Transmission Date: 20120608
  Serious: Yes (Other)
  Sender: FDA-Public Use
  Company Number: US-VERTEX PHARMACEUTICALS INC.-AE-2012-002845

PATIENT
  Age: 60 Year
  Sex: Male
  Weight: 86.26 kg

DRUGS (1)
  1. INCIVEK [Suspect]
     Indication: HEPATITIS C
     Route: 048

REACTIONS (3)
  - PAIN [None]
  - SKIN EXFOLIATION [None]
  - PRURITUS [None]
